FAERS Safety Report 13404213 (Version 4)
Quarter: 2018Q1

REPORT INFORMATION
  Report Type: Spontaneous
  Country: IT (occurrence: IT)
  Receive Date: 20170405
  Receipt Date: 20180228
  Transmission Date: 20180508
  Serious: Yes (Other)
  Sender: FDA-Public Use
  Company Number: IT-ROCHE-1914111

PATIENT
  Age: 42 Year
  Sex: Female

DRUGS (2)
  1. RIVOTRIL [Suspect]
     Active Substance: CLONAZEPAM
     Indication: DEPRESSION
     Route: 048
     Dates: start: 20170116, end: 20170116
  2. ALCOHOL. [Concomitant]
     Active Substance: ALCOHOL

REACTIONS (5)
  - Toxicity to various agents [Unknown]
  - Slow speech [Unknown]
  - Poverty of speech [Unknown]
  - Drug administration error [Unknown]
  - Breath odour [Unknown]

NARRATIVE: CASE EVENT DATE: 20170116
